FAERS Safety Report 12547173 (Version 1)
Quarter: 2016Q3

REPORT INFORMATION
  Report Type: Spontaneous
  Country: NG (occurrence: NG)
  Receive Date: 20160711
  Receipt Date: 20160711
  Transmission Date: 20161109
  Serious: Yes (Death)
  Sender: FDA-Public Use
  Company Number: NG-IMPAX LABORATORIES, INC-2016-IPXL-00721

PATIENT
  Age: 45 Year
  Sex: Male

DRUGS (1)
  1. CHLOROQUINE PHOSPHATE. [Suspect]
     Active Substance: CHLOROQUINE PHOSPHATE
     Indication: PYREXIA
     Dosage: 1500 MG,
     Route: 065

REACTIONS (3)
  - Drug abuse [Fatal]
  - Atrioventricular block complete [Fatal]
  - Toxicity to various agents [Fatal]
